FAERS Safety Report 25726496 (Version 1)
Quarter: 2025Q3

REPORT INFORMATION
  Report Type: Spontaneous
  Country: US (occurrence: US)
  Receive Date: 20250826
  Receipt Date: 20250826
  Transmission Date: 20251020
  Serious: No
  Sender: SANOFI AVENTIS
  Company Number: US-SA-2025SA254960

PATIENT
  Age: 77 Year
  Sex: Female

DRUGS (27)
  1. DUPIXENT [Suspect]
     Active Substance: DUPILUMAB
     Indication: Nasal polyps
     Dosage: 300 MG, QOW
     Route: 058
  2. ENTRESTO [Concomitant]
     Active Substance: SACUBITRIL\VALSARTAN
  3. ONDANSETRON HYDROCHLORIDE [Concomitant]
     Active Substance: ONDANSETRON HYDROCHLORIDE
  4. ISOSORBIDE DINITRATE [Concomitant]
     Active Substance: ISOSORBIDE DINITRATE
  5. PROBIOTICS NOS [Concomitant]
     Active Substance: PROBIOTICS NOS
  6. FLUOCINONIDE [Concomitant]
     Active Substance: FLUOCINONIDE
  7. TRULANCE [Concomitant]
     Active Substance: PLECANATIDE
  8. Mag glycinate [Concomitant]
  9. TUMS [Concomitant]
     Active Substance: CALCIUM CARBONATE
  10. OLOPATADINE HYDROCHLORIDE [Concomitant]
     Active Substance: OLOPATADINE HYDROCHLORIDE
  11. ALBUTEROL SULFATE [Concomitant]
     Active Substance: ALBUTEROL SULFATE
  12. RECLAST [Concomitant]
     Active Substance: ZOLEDRONIC ACID
  13. NEBIVOLOL [Concomitant]
     Active Substance: NEBIVOLOL
  14. Mctprocal [Concomitant]
  15. TYLENOL ARTHRITIS PAIN [Concomitant]
     Active Substance: ACETAMINOPHEN
  16. BUMETANIDE [Concomitant]
     Active Substance: BUMETANIDE
  17. NYSTATIN [Concomitant]
     Active Substance: NYSTATIN
  18. PROMETHAZINE HYDROCHLORIDE [Concomitant]
     Active Substance: PROMETHAZINE HYDROCHLORIDE
  19. VALIUM [Concomitant]
     Active Substance: DIAZEPAM
  20. VITAMIN D [Concomitant]
     Active Substance: VITAMIN D NOS
  21. VITAMIN B12 [Concomitant]
     Active Substance: CYANOCOBALAMIN
  22. FLONASE ALLERGY RELIEF [Concomitant]
     Active Substance: FLUTICASONE PROPIONATE
  23. COLACE [Concomitant]
     Active Substance: DOCUSATE SODIUM
  24. CARVEDILOL [Concomitant]
     Active Substance: CARVEDILOL
  25. GABAPENTIN [Concomitant]
     Active Substance: GABAPENTIN
  26. PROTONIX [Concomitant]
     Active Substance: PANTOPRAZOLE SODIUM
  27. MYRBETRIQ [Concomitant]
     Active Substance: MIRABEGRON

REACTIONS (1)
  - Tooth infection [Unknown]

NARRATIVE: CASE EVENT DATE: 20250701
